FAERS Safety Report 5157748-3 (Version None)
Quarter: 2006Q4

REPORT INFORMATION
  Report Type: 
  Country: None (occurrence: None)
  Receive Date: 20061127
  Receipt Date: 20061113
  Transmission Date: 20070319
  Serious: Yes (Hospitalization)
  Sender: FDA-Public Use
  Company Number: 2006CG01842

PATIENT
  Age: 75 Year
  Sex: Male

DRUGS (11)
  1. NEXIUM [Suspect]
     Route: 048
  2. DEBRIDAT [Suspect]
  3. DIOSMINE [Suspect]
  4. BROMAZEPAM [Suspect]
  5. MICARDIS [Suspect]
     Indication: ESSENTIAL HYPERTENSION
     Route: 048
  6. LOPRESSOR [Suspect]
     Indication: ESSENTIAL HYPERTENSION
     Route: 048
  7. SPASMINE [Suspect]
  8. ACETAMINOPHEN [Suspect]
  9. ZOLPIDEM TARTRATE [Suspect]
  10. TENSTATEN [Suspect]
  11. PYOSTACINE [Concomitant]
     Dates: start: 20060901

REACTIONS (4)
  - HYPOTENSION [None]
  - LEUKOCYTOSIS [None]
  - PUSTULAR PSORIASIS [None]
  - PYREXIA [None]
